FAERS Safety Report 26152114 (Version 1)
Quarter: 2025Q4

REPORT INFORMATION
  Report Type: Spontaneous
  Country: US (occurrence: US)
  Receive Date: 20251214
  Receipt Date: 20251214
  Transmission Date: 20260117
  Serious: Yes (Death)
  Sender: TAIHO ONCOLOGY INC
  Company Number: US-TAIHOP-2025-013335

PATIENT
  Sex: Male

DRUGS (1)
  1. INQOVI [Suspect]
     Active Substance: CEDAZURIDINE\DECITABINE
     Indication: Product used for unknown indication
     Dosage: (DECITABINE 35MG AND CEDAZURIDINE 100 MG) ON DAY 1 THROUGH DAY 5 OF 28 DAY CYCLE?CYCLE UNKNOWN
     Route: 048

REACTIONS (1)
  - Death [Fatal]
